FAERS Safety Report 7537855-8 (Version None)
Quarter: 2011Q2

REPORT INFORMATION
  Report Type: 
  Country: None (occurrence: None)
  Receive Date: 20110609
  Receipt Date: 20110601
  Transmission Date: 20111010
  Serious: Yes (Death, Hospitalization)
  Sender: FDA-Public Use
  Company Number: US-BAXTER-2011BH011837

PATIENT
  Sex: Male

DRUGS (1)
  1. DIANEAL [Suspect]
     Indication: PERITONEAL DIALYSIS
     Route: 033
     Dates: end: 20110501

REACTIONS (4)
  - PAIN [None]
  - TREATMENT NONCOMPLIANCE [None]
  - ABDOMINAL PAIN [None]
  - REFUSAL OF TREATMENT BY PATIENT [None]
